FAERS Safety Report 14310398 (Version 2)
Quarter: 2019Q2

REPORT INFORMATION
  Report Type: Spontaneous
  Country: US (occurrence: US)
  Receive Date: 20171220
  Receipt Date: 20190410
  Transmission Date: 20190711
  Serious: Yes (Hospitalization, Other)
  Sender: FDA-Public Use
  Company Number: US-ELI_LILLY_AND_COMPANY-US201712005792

PATIENT
  Sex: Male

DRUGS (8)
  1. LANTUS [Suspect]
     Active Substance: INSULIN GLARGINE
     Dosage: 90 U, DAILY
     Route: 065
     Dates: start: 201612
  2. LANTUS [Suspect]
     Active Substance: INSULIN GLARGINE
     Indication: TYPE 2 DIABETES MELLITUS
     Dosage: UNK, UNKNOWN
     Route: 065
     Dates: end: 201506
  3. METFORMIN [Concomitant]
     Active Substance: METFORMIN HYDROCHLORIDE
     Indication: TYPE 2 DIABETES MELLITUS
  4. HUMALOG [Suspect]
     Active Substance: INSULIN LISPRO
     Indication: TYPE 2 DIABETES MELLITUS
     Dosage: UNK, UNKNOWN
     Route: 058
     Dates: end: 201506
  5. GLIMEPIRIDE. [Concomitant]
     Active Substance: GLIMEPIRIDE
     Indication: TYPE 2 DIABETES MELLITUS
  6. HUMALOG [Suspect]
     Active Substance: INSULIN LISPRO
     Dosage: 90 U, UNKNOWN
     Route: 058
     Dates: start: 201612
  7. BASAGLAR [Suspect]
     Active Substance: INSULIN GLARGINE
     Indication: PRODUCT USED FOR UNKNOWN INDICATION
     Dosage: 45 [IU], BID
     Route: 065
  8. OPANA ER [Concomitant]
     Active Substance: OXYMORPHONE HYDROCHLORIDE
     Indication: PRODUCT USED FOR UNKNOWN INDICATION
     Dosage: UNK, UNKNOWN
     Route: 065

REACTIONS (35)
  - Alcoholic pancreatitis [Recovered/Resolved]
  - Food craving [Unknown]
  - Incorrect dose administered [Recovered/Resolved]
  - Renal failure [Recovered/Resolved]
  - Pneumonia aspiration [Recovered/Resolved]
  - Hyperphagia [Unknown]
  - White blood cell count increased [Unknown]
  - Drug level increased [Recovered/Resolved]
  - Rhinitis allergic [Not Recovered/Not Resolved]
  - Hunger [Unknown]
  - Injection site swelling [Recovered/Resolved]
  - Sleep apnoea syndrome [Not Recovered/Not Resolved]
  - Mouth breathing [Not Recovered/Not Resolved]
  - Pancreatitis [Recovered/Resolved]
  - Mental disorder [Recovered/Resolved]
  - Feeling abnormal [Unknown]
  - Post-traumatic stress disorder [Not Recovered/Not Resolved]
  - Blood glucose increased [Recovered/Resolved]
  - Eating disorder [Unknown]
  - Weight decreased [Unknown]
  - Insomnia [Not Recovered/Not Resolved]
  - Diarrhoea [Recovered/Resolved]
  - Sepsis [Recovered/Resolved]
  - Memory impairment [Unknown]
  - Blood glucose increased [Unknown]
  - Weight increased [Recovered/Resolved]
  - Oedema [Recovered/Resolved]
  - Hypoglycaemia [Not Recovered/Not Resolved]
  - Aggression [Recovered/Resolved]
  - Vomiting [Recovered/Resolved]
  - Brain oedema [Recovered/Resolved]
  - Dry mouth [Unknown]
  - Musculoskeletal pain [Recovered/Resolved]
  - Blood glucose decreased [Recovered/Resolved]
  - Inappropriate schedule of product administration [Unknown]

NARRATIVE: CASE EVENT DATE: 201602
